FAERS Safety Report 8071610-8 (Version None)
Quarter: 2012Q1

REPORT INFORMATION
  Report Type: 
  Country: None (occurrence: None)
  Receive Date: 20120125
  Receipt Date: 20120119
  Transmission Date: 20120608
  Serious: Yes (Hospitalization)
  Sender: FDA-Public Use
  Company Number: FR-PFIZER INC-2010017378

PATIENT
  Age: 79 Year

DRUGS (14)
  1. LYRICA [Suspect]
     Dosage: 75 MG, 1X/DAY
     Route: 048
     Dates: end: 20100109
  2. RAMIPRIL [Suspect]
     Dosage: 5 MG, 1X/DAY
     Route: 048
     Dates: end: 20100109
  3. ATARAX [Suspect]
     Dosage: 100 MG, 1X/DAY
     Route: 048
     Dates: end: 20100109
  4. POTASSIUM CHLORIDE [Suspect]
     Dosage: 2 DF, 1X/DAY
     Route: 048
     Dates: end: 20100109
  5. ALLOPURINOL [Concomitant]
     Dosage: UNK
  6. LERCANIDIPINE [Suspect]
     Dosage: 10 MG, 1X/DAY
     Route: 048
     Dates: end: 20100109
  7. CLONAZEPAM [Concomitant]
     Dosage: UNK
  8. MEPRONIZINE [Suspect]
     Dosage: 2 DF, 1X/DAY
     Route: 048
     Dates: end: 20100109
  9. LASIX [Suspect]
     Dosage: 80 MG, 1X/DAY
     Route: 048
     Dates: end: 20100109
  10. TAMSULOSIN [Concomitant]
     Dosage: UNK
  11. LEVOTHYROXINE SODIUM [Concomitant]
     Dosage: UNK
  12. VASTAREL [Suspect]
     Dosage: 70 MG, 1X/DAY
     Dates: end: 20100109
  13. BISOPROLOL FUMARATE [Concomitant]
     Dosage: UNK
  14. INSULATARD NPH HUMAN [Concomitant]
     Dosage: UNK

REACTIONS (1)
  - THROMBOCYTOPENIA [None]
